FAERS Safety Report 9377080 (Version 1)
Quarter: 2013Q2

REPORT INFORMATION
  Report Type: Spontaneous
  Country: US (occurrence: None)
  Receive Date: 20130628
  Receipt Date: 20130628
  Transmission Date: 20140414
  Serious: Yes (Other)
  Sender: FDA-Public Use
  Company Number: None

PATIENT
  Age: 58 Year
  Sex: Female
  Weight: 76.66 kg

DRUGS (1)
  1. VICTOZA [Suspect]
     Indication: TYPE 2 DIABETES MELLITUS
     Dosage: STRENGTH: 18MG/3ML?QUANTITY: .6ML?FREQUENCY: ONCE?HOW: INJECTED UNDER THE SKIN
     Dates: start: 20130616, end: 20130617

REACTIONS (6)
  - Nausea [None]
  - Headache [None]
  - Pain [None]
  - Swelling [None]
  - Abdominal tenderness [None]
  - Abdominal distension [None]
